FAERS Safety Report 12736695 (Version 2)
Quarter: 2016Q4

REPORT INFORMATION
  Report Type: Spontaneous
  Country: MX (occurrence: MX)
  Receive Date: 20160913
  Receipt Date: 20161027
  Transmission Date: 20170207
  Serious: Yes (Other)
  Sender: FDA-Public Use
  Company Number: PHHY2016MX124290

PATIENT
  Sex: Female
  Weight: 68 kg

DRUGS (12)
  1. LOBIVON [Concomitant]
     Active Substance: NEBIVOLOL HYDROCHLORIDE
     Indication: HYPERTENSION
     Dosage: 5 MG, QD
     Route: 048
     Dates: start: 2010
  2. LEXOTAN [Concomitant]
     Active Substance: BROMAZEPAM
     Indication: PRODUCT USED FOR UNKNOWN INDICATION
     Dosage: 3 MG, UNK
     Route: 065
  3. DORZOLAMIDE [Concomitant]
     Active Substance: DORZOLAMIDE
     Indication: GLAUCOMA
     Dosage: 1 DF, Q12H
     Route: 047
     Dates: start: 201508
  4. JANUMET [Concomitant]
     Active Substance: METFORMIN HYDROCHLORIDE\SITAGLIPTIN PHOSPHATE
     Indication: DIABETES MELLITUS
     Dosage: 1 DF, QD (100/1000)
     Route: 048
     Dates: start: 201508
  5. TIMOLOL. [Concomitant]
     Active Substance: TIMOLOL
     Indication: GLAUCOMA
     Dosage: 1 DF, Q12H
     Route: 047
     Dates: start: 201508
  6. BROMAZEPAM [Concomitant]
     Active Substance: BROMAZEPAM
     Indication: SLEEP DISORDER
     Dosage: 3 MG, QD
     Route: 048
  7. CO-DIOVAN [Suspect]
     Active Substance: HYDROCHLOROTHIAZIDE\VALSARTAN
     Indication: HYPERTENSION
     Dosage: 80/12.5 MG
     Route: 065
  8. CO-DIOVAN [Suspect]
     Active Substance: HYDROCHLOROTHIAZIDE\VALSARTAN
     Dosage: 320/12.5 MG
     Route: 048
     Dates: end: 201508
  9. COSOPT [Concomitant]
     Active Substance: DORZOLAMIDE HYDROCHLORIDE\TIMOLOL MALEATE
     Indication: PRODUCT USED FOR UNKNOWN INDICATION
     Route: 065
  10. PARACETAMOL [Concomitant]
     Active Substance: ACETAMINOPHEN
     Indication: ARTHRALGIA
     Dosage: 1 DF, Q8H
     Route: 048
     Dates: start: 2014
  11. ASPIRIN PROTECT [Concomitant]
     Active Substance: ASPIRIN
     Indication: HYPERTENSION
     Dosage: 1 DF, QD
     Route: 048
  12. TRAMADOL. [Concomitant]
     Active Substance: TRAMADOL
     Indication: ARTHRALGIA
     Dosage: 1 DF, Q8H
     Route: 048
     Dates: start: 2014

REACTIONS (6)
  - Intestinal obstruction [Unknown]
  - Drug ineffective [Recovered/Resolved]
  - Blood pressure increased [Recovered/Resolved]
  - Tachycardia [Recovered/Resolved]
  - Irritable bowel syndrome [Not Recovered/Not Resolved]
  - Vesicoureteric reflux [Not Recovered/Not Resolved]

NARRATIVE: CASE EVENT DATE: 2011
